FAERS Safety Report 15555822 (Version 1)
Quarter: 2018Q4

REPORT INFORMATION
  Report Type: Report from Study
  Country: US (occurrence: US)
  Receive Date: 20181026
  Receipt Date: 20181026
  Transmission Date: 20190205
  Serious: Yes (Other)
  Sender: FDA-Public Use
  Company Number: US-SA-2018SA291497

PATIENT
  Age: 59 Year
  Sex: Female

DRUGS (2)
  1. NOVOLOG [Concomitant]
     Active Substance: INSULIN ASPART
     Dosage: 45 U, QD
  2. INSULIN GLARGINE [Suspect]
     Active Substance: INSULIN GLARGINE
     Indication: DIABETES MELLITUS
     Dosage: 86 U, BID
     Route: 058

REACTIONS (4)
  - Impaired quality of life [Not Recovered/Not Resolved]
  - Blindness [Not Recovered/Not Resolved]
  - Product dose omission [Unknown]
  - General physical health deterioration [Not Recovered/Not Resolved]
